FAERS Safety Report 14515668 (Version 1)
Quarter: 2018Q1

REPORT INFORMATION
  Report Type: Report from Study
  Country: US (occurrence: US)
  Receive Date: 20180210
  Receipt Date: 20180210
  Transmission Date: 20180509
  Serious: No
  Sender: FDA-Public Use
  Company Number: US-PUMA BIOTECHNOLOGY, LTD.-2017US015312

PATIENT

DRUGS (2)
  1. NERLYNX [Suspect]
     Active Substance: NERATINIB
     Indication: BREAST CANCER
     Dosage: 6 TABLETS (240 MG), DAILY
     Route: 048
     Dates: start: 201709, end: 201710
  2. NERLYNX [Suspect]
     Active Substance: NERATINIB
     Dosage: 120 MG, DAILY
     Route: 048
     Dates: start: 201711

REACTIONS (4)
  - Decreased appetite [Unknown]
  - Dehydration [Unknown]
  - Fatigue [Unknown]
  - Diarrhoea [Unknown]
